FAERS Safety Report 16854685 (Version 1)
Quarter: 2019Q3

REPORT INFORMATION
  Report Type: Spontaneous
  Country: US (occurrence: US)
  Receive Date: 20190926
  Receipt Date: 20190926
  Transmission Date: 20191005
  Serious: No
  Sender: FDA-Public Use
  Company Number: US-BION-007824

PATIENT
  Sex: Female

DRUGS (2)
  1. METHOTREXATE/METHOTREXATE SODIUM [Concomitant]
     Indication: T-CELL LYMPHOMA
  2. BEXAROTENE. [Suspect]
     Active Substance: BEXAROTENE
     Indication: T-CELL LYMPHOMA

REACTIONS (1)
  - Drug ineffective [Not Recovered/Not Resolved]
